FAERS Safety Report 5131445-2 (Version None)
Quarter: 2006Q4

REPORT INFORMATION
  Report Type: 
  Country: None (occurrence: None)
  Receive Date: 20061020
  Receipt Date: 20060301
  Transmission Date: 20070319
  Serious: Yes (Hospitalization)
  Sender: FDA-Public Use
  Company Number: DE-BRISTOL-MYERS SQUIBB COMPANY-13299656

PATIENT
  Age: 61 Year
  Sex: Male

DRUGS (9)
  1. CISPLATIN [Suspect]
     Indication: SMALL CELL LUNG CANCER STAGE UNSPECIFIED
     Route: 042
     Dates: start: 20060207, end: 20060207
  2. ETOPOSIDE [Suspect]
     Indication: SMALL CELL LUNG CANCER STAGE UNSPECIFIED
     Route: 042
     Dates: start: 20060207, end: 20060209
  3. PANTOPRAZOLE SODIUM [Concomitant]
     Dates: start: 20051115
  4. DIHYDROCODEINE TARTRATE [Concomitant]
  5. LACTULOSE [Concomitant]
  6. ONDANSETRON HCL [Concomitant]
     Dates: start: 20051101
  7. CODEINE [Concomitant]
  8. ENOXAPARIN SODIUM [Concomitant]
     Dates: start: 20051212
  9. AUGMENTIN [Concomitant]

REACTIONS (3)
  - HYPOKALAEMIA [None]
  - HYPONATRAEMIA [None]
  - LUNG INFECTION [None]
